FAERS Safety Report 13023468 (Version 1)
Quarter: 2016Q4

REPORT INFORMATION
  Report Type: Report from Study
  Country: DE (occurrence: DE)
  Receive Date: 20161213
  Receipt Date: 20161213
  Transmission Date: 20170207
  Serious: Yes (Hospitalization)
  Sender: FDA-Public Use
  Company Number: DE-SA-2016SA219892

PATIENT
  Age: 66 Year
  Sex: Male

DRUGS (24)
  1. FLUOROURACIL. [Suspect]
     Active Substance: FLUOROURACIL
     Indication: COLORECTAL CANCER METASTATIC
     Route: 040
     Dates: start: 20160426
  2. FLUOROURACIL. [Suspect]
     Active Substance: FLUOROURACIL
     Indication: COLORECTAL CANCER METASTATIC
     Route: 041
     Dates: start: 20160426
  3. UNACID [Concomitant]
     Active Substance: AMPICILLIN SODIUM\SULBACTAM SODIUM
     Indication: DEHYDRATION
     Dates: start: 20160417, end: 20160424
  4. HYDROCHLOROTHIAZIDE. [Concomitant]
     Active Substance: HYDROCHLOROTHIAZIDE
  5. UNACID [Concomitant]
     Active Substance: AMPICILLIN SODIUM\SULBACTAM SODIUM
     Indication: PNEUMONIA
     Dates: start: 20160417, end: 20160424
  6. UNACID [Concomitant]
     Active Substance: AMPICILLIN SODIUM\SULBACTAM SODIUM
     Indication: PNEUMONIA
     Dates: start: 20160329, end: 20160407
  7. UNACID [Concomitant]
     Active Substance: AMPICILLIN SODIUM\SULBACTAM SODIUM
     Indication: DEHYDRATION
     Dates: start: 20160329, end: 20160407
  8. KALINOR [Concomitant]
     Active Substance: POTASSIUM CITRATE
     Indication: PANCYTOPENIA
     Dates: start: 20160418, end: 20160422
  9. CALCIUM FOLINATE [Suspect]
     Active Substance: LEUCOVORIN CALCIUM
     Indication: COLORECTAL CANCER METASTATIC
     Route: 042
     Dates: start: 20160316
  10. CANDESARTAN [Concomitant]
     Active Substance: CANDESARTAN
     Dates: start: 20160409
  11. BEVACIZUMAB [Suspect]
     Active Substance: BEVACIZUMAB
     Indication: COLORECTAL CANCER METASTATIC
     Dates: start: 20160316
  12. FLUOROURACIL. [Suspect]
     Active Substance: FLUOROURACIL
     Indication: COLORECTAL CANCER METASTATIC
     Dosage: 1 IN 2 WEEK
     Route: 040
     Dates: start: 20160316
  13. FLUOROURACIL. [Suspect]
     Active Substance: FLUOROURACIL
     Indication: COLORECTAL CANCER METASTATIC
     Dosage: 1 IN 2 WEEK
     Route: 041
     Dates: start: 20160316
  14. TAZOBAC [Concomitant]
     Active Substance: PIPERACILLIN SODIUM\TAZOBACTAM SODIUM
     Dates: start: 20160329, end: 20160329
  15. NEUPOGEN [Concomitant]
     Active Substance: FILGRASTIM
     Indication: NEUTROPENIA
     Dosage: DOSE:30 UNIT(S)
     Dates: start: 20160329, end: 20160330
  16. IMODIUM AKUT [Concomitant]
     Active Substance: LOPERAMIDE
     Dates: start: 20160409
  17. MOTILIUM [Concomitant]
     Active Substance: DOMPERIDONE
     Dosage: DOSE:25 UNIT(S)
     Dates: start: 20160409
  18. OXALIPLATIN. [Suspect]
     Active Substance: OXALIPLATIN
     Indication: COLORECTAL CANCER METASTATIC
     Dosage: 1 IN 2 WEEK
     Route: 042
     Dates: start: 20160426
  19. OXALIPLATIN. [Suspect]
     Active Substance: OXALIPLATIN
     Indication: COLORECTAL CANCER METASTATIC
     Dosage: 1 IN 2 WEEK
     Route: 042
     Dates: start: 20160316
  20. TAZOBAC [Concomitant]
     Active Substance: PIPERACILLIN SODIUM\TAZOBACTAM SODIUM
     Dates: start: 20150417, end: 20160422
  21. CEFUROXIME. [Concomitant]
     Active Substance: CEFUROXIME
     Indication: PANCYTOPENIA
     Dates: start: 20160417, end: 20160422
  22. CANDESARTAN [Concomitant]
     Active Substance: CANDESARTAN
  23. CALCIUM FOLINATE [Suspect]
     Active Substance: LEUCOVORIN CALCIUM
     Indication: COLORECTAL CANCER METASTATIC
     Route: 042
     Dates: start: 20160426
  24. ONDASETRON [Concomitant]
     Active Substance: ONDANSETRON
     Indication: PANCYTOPENIA
     Dates: start: 20160409

REACTIONS (1)
  - Gastrointestinal necrosis [Recovered/Resolved]

NARRATIVE: CASE EVENT DATE: 20160509
